FAERS Safety Report 12115682 (Version 1)
Quarter: 2016Q1

REPORT INFORMATION
  Report Type: Spontaneous
  Country: US (occurrence: US)
  Receive Date: 20160225
  Receipt Date: 20160225
  Transmission Date: 20160526
  Serious: No
  Sender: FDA-Public Use
  Company Number: US-GLAXOSMITHKLINE-US2016024132

PATIENT
  Age: 60 Year
  Sex: Male

DRUGS (11)
  1. LISINOPRIL. [Concomitant]
     Active Substance: LISINOPRIL
  2. ASPIRIN. [Concomitant]
     Active Substance: ASPIRIN
  3. LEVEMIR [Concomitant]
     Active Substance: INSULIN DETEMIR
  4. LEVOTHYROXINE. [Concomitant]
     Active Substance: LEVOTHYROXINE
  5. NAPROXEN. [Concomitant]
     Active Substance: NAPROXEN
  6. TRAMADOL. [Concomitant]
     Active Substance: TRAMADOL
  7. GABAPENTIN. [Concomitant]
     Active Substance: GABAPENTIN
  8. TANZEUM [Suspect]
     Active Substance: ALBIGLUTIDE
     Dosage: 30 MG AND, THEN, 50 MG
     Route: 058
     Dates: start: 201601
  9. CARVEDILOL. [Concomitant]
     Active Substance: CARVEDILOL
  10. FAMOTIDINE. [Concomitant]
     Active Substance: FAMOTIDINE
  11. LOVASTATIN. [Concomitant]
     Active Substance: LOVASTATIN

REACTIONS (2)
  - Cough [Not Recovered/Not Resolved]
  - Hypertension [Not Recovered/Not Resolved]

NARRATIVE: CASE EVENT DATE: 201601
